FAERS Safety Report 15813225 (Version 2)
Quarter: 2019Q4

REPORT INFORMATION
  Report Type: Spontaneous
  Country: US (occurrence: US)
  Receive Date: 20190111
  Receipt Date: 20191024
  Transmission Date: 20200122
  Serious: Yes (Other)
  Sender: FDA-Public Use
  Company Number: US-SA-2019SA007318

PATIENT
  Age: 48 Year
  Sex: Female
  Weight: 165.56 kg

DRUGS (7)
  1. NEOSAR [Concomitant]
     Active Substance: CYCLOPHOSPHAMIDE
     Dosage: UNK UNK, UNK
  2. ZOLOFT [Concomitant]
     Active Substance: SERTRALINE HYDROCHLORIDE
     Dosage: UNK
     Dates: start: 2013
  3. ARIMIDEX [Concomitant]
     Active Substance: ANASTROZOLE
     Dosage: UNK
     Dates: start: 2013
  4. DOCETAXEL. [Suspect]
     Active Substance: DOCETAXEL
     Dosage: 210 MG, Q3W
     Route: 042
     Dates: start: 20130313, end: 20130313
  5. DOCETAXEL. [Suspect]
     Active Substance: DOCETAXEL
     Dosage: 210 MG, Q3W
     Route: 042
     Dates: start: 20130515, end: 20130515
  6. IBUPROFEN. [Concomitant]
     Active Substance: IBUPROFEN
     Dosage: UNK
     Dates: start: 2003
  7. PAXIL [PIROXICAM] [Concomitant]
     Active Substance: PIROXICAM
     Dosage: UNK
     Dates: start: 2013

REACTIONS (2)
  - Alopecia [Recovering/Resolving]
  - Psychological trauma [Unknown]

NARRATIVE: CASE EVENT DATE: 20130515
